FAERS Safety Report 11157739 (Version 2)
Quarter: 2015Q2

REPORT INFORMATION
  Report Type: Spontaneous
  Country: US (occurrence: US)
  Receive Date: 20150603
  Receipt Date: 20150622
  Transmission Date: 20150821
  Serious: Yes (Other)
  Sender: FDA-Public Use
  Company Number: US-AMGEN-USASP2015052528

PATIENT
  Age: 54 Year
  Sex: Female

DRUGS (3)
  1. INDOMETHACIN                       /00003801/ [Concomitant]
     Active Substance: INDOMETHACIN
     Indication: GASTRIC ULCER
     Dosage: UNK
     Dates: start: 2012
  2. ENBREL [Suspect]
     Active Substance: ETANERCEPT
     Indication: ARTHRITIS REACTIVE
     Dosage: 50 MG, QWK
     Route: 058
     Dates: start: 2005, end: 2012
  3. REMICADE [Concomitant]
     Active Substance: INFLIXIMAB
     Indication: CELLULITIS
     Dosage: UNK
     Dates: start: 2013

REACTIONS (5)
  - Cellulitis [Unknown]
  - Drug ineffective [Recovered/Resolved]
  - Gastric ulcer [Recovered/Resolved]
  - Arthritis infective [Recovered/Resolved]
  - Off label use [Not Recovered/Not Resolved]

NARRATIVE: CASE EVENT DATE: 2010
